FAERS Safety Report 24169031 (Version 6)
Quarter: 2024Q4

REPORT INFORMATION
  Report Type: Spontaneous
  Country: US (occurrence: US)
  Receive Date: 20240802
  Receipt Date: 20241227
  Transmission Date: 20250115
  Serious: No
  Sender: PFIZER
  Company Number: US-PFIZER INC-PV202400098866

PATIENT
  Age: 86 Year
  Sex: Female

DRUGS (2)
  1. IBRANCE [Suspect]
     Active Substance: PALBOCICLIB
     Dosage: 100 MG
  2. IBRANCE [Suspect]
     Active Substance: PALBOCICLIB
     Dosage: 75 MG

REACTIONS (10)
  - Condition aggravated [Unknown]
  - Fatigue [Unknown]
  - Cough [Unknown]
  - Alopecia [Unknown]
  - Urinary incontinence [Unknown]
  - Neutrophil count decreased [Unknown]
  - Constipation [Unknown]
  - Paraesthesia [Unknown]
  - Hypoaesthesia [Unknown]
  - White blood cell count decreased [Unknown]
